FAERS Safety Report 7432075-X (Version None)
Quarter: 2011Q1

REPORT INFORMATION
  Report Type: 
  Country: None (occurrence: None)
  Receive Date: 20110302
  Receipt Date: 20101207
  Transmission Date: 20110831
  Serious: No
  Sender: FDA-Public Use
  Company Number: 020713

PATIENT
  Sex: Female
  Weight: 170 kg

DRUGS (8)
  1. METHOTREXATE [Concomitant]
  2. CIMZIA [Suspect]
     Indication: CROHN'S DISEASE
     Dosage: 400 MG 1X/4 WEEKS SUBCUTANEOUS. 400 MG 1X/28 DAYS SUBCUTANEOUS
     Route: 058
     Dates: start: 20081003
  3. CIMZIA [Suspect]
     Indication: CROHN'S DISEASE
     Dosage: 400 MG 1X/4 WEEKS SUBCUTANEOUS. 400 MG 1X/28 DAYS SUBCUTANEOUS
     Route: 058
     Dates: start: 20081003
  4. PROMETHAZINE [Concomitant]
  5. CIMZIA [Suspect]
  6. FAMOTIDINE [Concomitant]
  7. MECLIZINE [Concomitant]
  8. VITAMIN B12 NOS [Concomitant]

REACTIONS (3)
  - FREQUENT BOWEL MOVEMENTS [None]
  - DIARRHOEA [None]
  - ABDOMINAL PAIN [None]
